FAERS Safety Report 4750009-3 (Version None)
Quarter: 2005Q3

REPORT INFORMATION
  Report Type: 
  Country: None (occurrence: None)
  Receive Date: 20050822
  Receipt Date: 20050804
  Transmission Date: 20060218
  Serious: Yes (Other)
  Sender: FDA-Public Use
  Company Number: B0389688A

PATIENT
  Age: 17 Month
  Sex: Male

DRUGS (4)
  1. RETROVIR [Suspect]
     Dosage: TRANSPLACENTARY
     Route: 064
  2. RETROVIR [Suspect]
  3. IRON SALT [Concomitant]
  4. MULTI-VITAMIN [Concomitant]

REACTIONS (6)
  - COGNITIVE DISORDER [None]
  - DRUG EXPOSURE DURING PREGNANCY [None]
  - DYSTONIA [None]
  - MITOCHONDRIAL MYOPATHY [None]
  - NUCLEAR MAGNETIC RESONANCE IMAGING BRAIN ABNORMAL [None]
  - NYSTAGMUS [None]
